FAERS Safety Report 7245096-7 (Version None)
Quarter: 2011Q1

REPORT INFORMATION
  Report Type: 
  Country: None (occurrence: None)
  Receive Date: 20110126
  Receipt Date: 20110119
  Transmission Date: 20110831
  Serious: Yes (Death)
  Sender: FDA-Public Use
  Company Number: JP-GENZYME-THYM-1001869

PATIENT
  Sex: Female
  Weight: 45 kg

DRUGS (20)
  1. THYMOGLOBULIN [Suspect]
     Indication: BONE MARROW CONDITIONING REGIMEN
     Dosage: 110 MG, QD
     Route: 042
     Dates: start: 20100308, end: 20100308
  2. BACTRIM [Concomitant]
     Indication: PROPHYLAXIS
     Dosage: UNK
     Dates: start: 20100401, end: 20100506
  3. CARBENIN [Concomitant]
     Indication: PROPHYLAXIS
     Dosage: UNK
     Dates: start: 20100509, end: 20100517
  4. CIPROFLOXACIN [Concomitant]
     Indication: FEBRILE NEUTROPENIA
     Dosage: UNK
     Dates: start: 20100517, end: 20100520
  5. PREDNISOLONE SODIUM SUCCINATE INJ [Concomitant]
     Indication: BONE MARROW CONDITIONING REGIMEN
     Dosage: UNK
     Dates: start: 20100330, end: 20100518
  6. PIPERACILLIN SODIUM [Concomitant]
     Indication: PROPHYLAXIS
     Dosage: UNK
     Dates: start: 20100507, end: 20100507
  7. FOSCARNET SODIUM [Concomitant]
     Indication: CYTOMEGALOVIRUS INFECTION
     Dosage: UNK
     Dates: start: 20100513, end: 20100520
  8. ACICLOVIR [Concomitant]
     Indication: INFECTION PROPHYLAXIS
     Dosage: UNK
     Dates: start: 20100305, end: 20100414
  9. FLUDARABINE PHOSPHATE [Concomitant]
     Indication: BONE MARROW CONDITIONING REGIMEN
     Dosage: UNK
     Dates: start: 20100303, end: 20100308
  10. ETOPOSIDE [Concomitant]
     Indication: BONE MARROW CONDITIONING REGIMEN
     Dosage: UNK
     Dates: start: 20100303, end: 20100304
  11. MEROPENEM [Concomitant]
     Indication: PROPHYLAXIS
     Dosage: UNK
     Dates: start: 20100430, end: 20100503
  12. VANCOMYCIN HCL [Concomitant]
     Indication: FEBRILE NEUTROPENIA
     Dosage: UNK
     Dates: start: 20100518, end: 20100520
  13. GANCICLOVIR [Concomitant]
     Indication: PROPHYLAXIS
     Dosage: UNK
     Dates: start: 20100328, end: 20100513
  14. PREDNISOLONE [Concomitant]
     Indication: BONE MARROW CONDITIONING REGIMEN
     Dosage: UNK
     Dates: start: 20100409, end: 20100415
  15. ITRACONAZOLE [Concomitant]
     Indication: INFECTION PROPHYLAXIS
     Dosage: UNK
     Dates: start: 20100305, end: 20100429
  16. TACROLIMUS [Concomitant]
     Indication: BONE MARROW CONDITIONING REGIMEN
     Dosage: UNK
     Dates: start: 20100309, end: 20100507
  17. METHYLPREDNISOLONE SODIUM SUCCINATE [Concomitant]
     Indication: PREMEDICATION
     Dosage: UNK
     Dates: start: 20100304, end: 20100329
  18. TACROLIMUS [Concomitant]
     Indication: PROPHYLAXIS AGAINST GRAFT VERSUS HOST DISEASE
  19. CEFOZOPRAN HYDROCHLORIDE [Concomitant]
     Indication: PROPHYLAXIS
     Dosage: UNK
     Dates: start: 20100311, end: 20100329
  20. MICAFUNGIN SODIUM [Concomitant]
     Indication: FEBRILE NEUTROPENIA
     Dosage: UNK
     Dates: start: 20100518, end: 20100520

REACTIONS (1)
  - EPSTEIN-BARR VIRUS ASSOCIATED LYMPHOPROLIFERATIVE DISORDER [None]
